FAERS Safety Report 24250946 (Version 5)
Quarter: 2025Q1

REPORT INFORMATION
  Report Type: Report from Study
  Country: US (occurrence: US)
  Receive Date: 20240826
  Receipt Date: 20250131
  Transmission Date: 20250409
  Serious: Yes (Death, Life-Threatening, Hospitalization, Other)
  Sender: IOVANCE BIOTHERAPEUTICS MANUFACTURING LLC
  Company Number: US-Clinigen Group PLC/ Clinigen Healthcare Ltd-US-CLGN-20-00340

PATIENT
  Age: 68 Year
  Sex: Male
  Weight: 89.8 kg

DRUGS (5)
  1. ALDESLEUKIN [Suspect]
     Active Substance: ALDESLEUKIN
     Indication: Squamous cell carcinoma of the oral cavity
     Route: 042
     Dates: start: 20200724, end: 20200726
  2. LIFILEUCEL [Suspect]
     Active Substance: LIFILEUCEL
     Indication: Squamous cell carcinoma of the oral cavity
     Route: 042
     Dates: start: 20200723, end: 20200723
  3. CYCLOPHOSPHAMIDE [Suspect]
     Active Substance: CYCLOPHOSPHAMIDE
     Indication: Squamous cell carcinoma of the oral cavity
     Route: 042
     Dates: start: 20200716, end: 20200717
  4. FLUDARABINE [Suspect]
     Active Substance: FLUDARABINE PHOSPHATE
     Indication: Squamous cell carcinoma of the oral cavity
     Route: 042
     Dates: start: 20200718, end: 20200722
  5. CEFEPIME [Suspect]
     Active Substance: CEFEPIME HYDROCHLORIDE
     Indication: Product used for unknown indication
     Route: 065

REACTIONS (6)
  - Acute kidney injury [Fatal]
  - Pseudomonas infection [Unknown]
  - Septic shock [Fatal]
  - Acute respiratory failure [Fatal]
  - Encephalopathy [Not Recovered/Not Resolved]
  - Hyperuricaemia [Not Recovered/Not Resolved]

NARRATIVE: CASE EVENT DATE: 20200728
